FAERS Safety Report 14308579 (Version 1)
Quarter: 2017Q4

REPORT INFORMATION
  Report Type: Spontaneous
  Country: GB (occurrence: FR)
  Receive Date: 20171220
  Receipt Date: 20171220
  Transmission Date: 20180321
  Serious: Yes (Life-Threatening)
  Sender: FDA-Public Use
  Company Number: FR-FRESENIUS KABI-FK201710916

PATIENT
  Age: 55 Year
  Sex: Female

DRUGS (4)
  1. PROPOFOL FRESENIUS (NOT SPECIFIED) [Suspect]
     Active Substance: PROPOFOL
     Indication: ANAESTHESIA
     Route: 042
     Dates: start: 20170830, end: 20170830
  2. ATRACURIUM HOSPIRA [Suspect]
     Active Substance: ATRACURIUM
     Indication: ANAESTHESIA
     Route: 042
     Dates: start: 20170830, end: 20170830
  3. SUFENTANIL MYLAN [Suspect]
     Active Substance: SUFENTANIL
     Indication: ANAESTHESIA
     Route: 042
     Dates: start: 20170830, end: 20170830
  4. CEFAZOLINE PANPHARMA [Suspect]
     Active Substance: CEFAZOLIN SODIUM
     Indication: ANAESTHESIA
     Route: 042
     Dates: start: 20170830, end: 20170830

REACTIONS (1)
  - Anaphylactic shock [Recovered/Resolved]

NARRATIVE: CASE EVENT DATE: 20170830
